FAERS Safety Report 7201925-4 (Version None)
Quarter: 2010Q4

REPORT INFORMATION
  Report Type: 
  Country: None (occurrence: None)
  Receive Date: 20101229
  Receipt Date: 20101217
  Transmission Date: 20110411
  Serious: Yes (Other)
  Sender: FDA-Public Use
  Company Number: US-PFIZER INC-2010174886

PATIENT
  Sex: Male
  Weight: 115.65 kg

DRUGS (4)
  1. LYRICA [Suspect]
     Indication: MOOD SWINGS
     Dosage: 100 MG, 3X/DAY
     Route: 048
     Dates: start: 20090601, end: 20101209
  2. EFFEXOR XR [Suspect]
     Indication: ANXIETY
     Dosage: UNK
     Dates: start: 20031001
  3. EFFEXOR XR [Suspect]
     Indication: DEPRESSION
  4. BUPRENORPHINE HCL AND NALOXONE HCL [Concomitant]
     Dosage: 4 MG, 2X/DAY

REACTIONS (2)
  - DRUG DEPENDENCE [None]
  - WITHDRAWAL SYNDROME [None]
